FAERS Safety Report 8010125 (Version 18)
Quarter: 2014Q1

REPORT INFORMATION
  Report Type: Spontaneous
  Country: US (occurrence: US)
  Receive Date: 20110627
  Receipt Date: 20140317
  Transmission Date: 20141002
  Serious: Yes (Other)
  Sender: FDA-Public Use
  Company Number: PHEH2011US00502

PATIENT
  Sex: Male

DRUGS (6)
  1. ZOMETA [Suspect]
     Indication: BONE DISORDER
     Dosage: 4 MG
     Route: 042
     Dates: end: 20090811
  2. DIGOXIN [Concomitant]
  3. LEVOTHYROXINE [Concomitant]
  4. VICODIN [Concomitant]
  5. LASIX [Concomitant]
  6. METOPROLOL [Concomitant]

REACTIONS (161)
  - Osteonecrosis of jaw [Unknown]
  - Pain [Unknown]
  - Infection [Unknown]
  - Injury [Unknown]
  - Deformity [Unknown]
  - Emotional distress [Unknown]
  - Osteopenia [Unknown]
  - Osteoarthritis [Unknown]
  - Vascular calcification [Unknown]
  - Cardiac murmur [Unknown]
  - Periarthritis [Unknown]
  - Rib fracture [Unknown]
  - Hypertension [Unknown]
  - Lumbar spinal stenosis [Unknown]
  - Aortic calcification [Unknown]
  - Lung infiltration [Unknown]
  - Pleural effusion [Unknown]
  - Compression fracture [Unknown]
  - Atelectasis [Unknown]
  - Pulmonary fibrosis [Unknown]
  - Aortic arteriosclerosis [Unknown]
  - Cardiomegaly [Unknown]
  - Prostate cancer [Unknown]
  - Spinal osteoarthritis [Unknown]
  - Angina pectoris [Unknown]
  - Skin cancer [Unknown]
  - Kyphosis [Unknown]
  - Thrombosis [Unknown]
  - Osteoporosis [Unknown]
  - Deafness [Unknown]
  - Scoliosis [Unknown]
  - Chronic obstructive pulmonary disease [Unknown]
  - Atrial fibrillation [Unknown]
  - Aortic stenosis [Unknown]
  - Pulmonary embolism [Unknown]
  - Diabetes mellitus [Unknown]
  - Fall [Unknown]
  - Sinusitis [Unknown]
  - Pancreatitis acute [Unknown]
  - Cholelithiasis [Unknown]
  - Syncope [Unknown]
  - Coronary artery disease [Unknown]
  - Pathological fracture [Unknown]
  - Calcinosis [Unknown]
  - Nervous system disorder [Unknown]
  - Cerebral atrophy [Unknown]
  - Osteolysis [Unknown]
  - Bone disorder [Unknown]
  - Cerebral small vessel ischaemic disease [Unknown]
  - Cerebral arteriosclerosis [Unknown]
  - Bone erosion [Unknown]
  - Diverticulum [Unknown]
  - Hernia [Unknown]
  - Renal cyst [Unknown]
  - Haematoma [Unknown]
  - Bone lesion [Unknown]
  - Gliosis [Unknown]
  - Intervertebral disc space narrowing [Unknown]
  - Spinal column stenosis [Unknown]
  - Hypertrophy [Unknown]
  - Ligament disorder [Unknown]
  - Spondylolisthesis [Unknown]
  - Aortic aneurysm [Unknown]
  - Gastrointestinal haemorrhage [Unknown]
  - Rectal haemorrhage [Unknown]
  - Respiratory distress [Unknown]
  - Angiopathy [Unknown]
  - Pulmonary oedema [Unknown]
  - Bone density decreased [Unknown]
  - Arthropathy [Unknown]
  - Haematuria [Unknown]
  - Nephrolithiasis [Unknown]
  - Intervertebral disc protrusion [Unknown]
  - Radiculopathy [Unknown]
  - Radicular pain [Unknown]
  - Pulmonary hypertension [Unknown]
  - Abscess [Unknown]
  - Dysphagia [Unknown]
  - Swelling [Unknown]
  - Gout [Unknown]
  - Jaw fracture [Unknown]
  - Periorbital abscess [Unknown]
  - Diplopia [Unknown]
  - Eyelid oedema [Unknown]
  - Soft tissue inflammation [Unknown]
  - Cellulitis [Unknown]
  - Cardiac failure [Unknown]
  - Cerebrovascular accident [Unknown]
  - Eye pain [Unknown]
  - Purulent discharge [Unknown]
  - Osteomyelitis [Unknown]
  - Tooth loss [Unknown]
  - Gait disturbance [Unknown]
  - Wound [Unknown]
  - Depression [Unknown]
  - Lower urinary tract symptoms [Unknown]
  - Venous insufficiency [Unknown]
  - Arterial insufficiency [Unknown]
  - Gastric ulcer [Unknown]
  - Spinal compression fracture [Unknown]
  - Sciatica [Unknown]
  - Anxiety [Unknown]
  - Benign prostatic hyperplasia [Unknown]
  - Actinic keratosis [Unknown]
  - Intervertebral disc disorder [Unknown]
  - Mitral valve incompetence [Unknown]
  - Cardiac valve disease [Unknown]
  - Hyperproteinaemia [Unknown]
  - Hypotension [Unknown]
  - Squamous cell carcinoma of skin [Unknown]
  - Exposed bone in jaw [Unknown]
  - Anaemia [Unknown]
  - Lordosis [Unknown]
  - Intervertebral disc degeneration [Unknown]
  - Essential hypertension [Unknown]
  - Hyperlipidaemia [Unknown]
  - Aortic valve disease [Unknown]
  - Hypercholesterolaemia [Unknown]
  - Choroidal neovascularisation [Unknown]
  - Onychomycosis [Unknown]
  - Vision blurred [Unknown]
  - Respiratory failure [Unknown]
  - Hypoxia [Unknown]
  - Gastritis [Unknown]
  - Gastroduodenitis [Unknown]
  - Vertebral wedging [Unknown]
  - Aortic dilatation [Unknown]
  - Cholecystitis chronic [Unknown]
  - Thyroid neoplasm [Unknown]
  - Thyroid cyst [Unknown]
  - Asthma [Unknown]
  - Hypothyroidism [Unknown]
  - Haemorrhoids [Unknown]
  - Haematochezia [Unknown]
  - Dental caries [Unknown]
  - Fistula [Unknown]
  - Transient ischaemic attack [Unknown]
  - Cerebral infarction [Unknown]
  - Accident at home [Unknown]
  - Cataract [Unknown]
  - Eyelid ptosis [Unknown]
  - Exostosis [Unknown]
  - Bone marrow oedema [Unknown]
  - Vertebral foraminal stenosis [Unknown]
  - Facet joint syndrome [Unknown]
  - Bile duct stone [Unknown]
  - Oroantral fistula [Unknown]
  - Convulsion [Unknown]
  - Streptococcal infection [Unknown]
  - Eye swelling [Unknown]
  - Strabismus [Unknown]
  - Bone fragmentation [Unknown]
  - Actinomycosis [Unknown]
  - Arthralgia [Unknown]
  - Hypoaesthesia [Unknown]
  - Oedema peripheral [Unknown]
  - Confusional state [Unknown]
  - Back pain [Unknown]
  - Abdominal pain [Unknown]
  - Chest pain [Unknown]
  - Dyspnoea [Unknown]
